FAERS Safety Report 25336710 (Version 1)
Quarter: 2025Q2

REPORT INFORMATION
  Report Type: Spontaneous
  Country: GB (occurrence: GB)
  Receive Date: 20250520
  Receipt Date: 20250520
  Transmission Date: 20250717
  Serious: Yes (Hospitalization, Other)
  Sender: LEO PHARM
  Company Number: None

PATIENT
  Age: 48 Year
  Sex: Male

DRUGS (2)
  1. ADBRY [Suspect]
     Active Substance: TRALOKINUMAB-LDRM
     Indication: Eczema
     Dosage: 2 X 150 INJECTION FORTNIGHTLY
     Dates: start: 20240401
  2. METHOTREXATE [Concomitant]
     Active Substance: METHOTREXATE
     Indication: Product used for unknown indication
     Dosage: 15MG PEN INJECTION WEEKLY

REACTIONS (1)
  - Eczema herpeticum [Recovered/Resolved]

NARRATIVE: CASE EVENT DATE: 20240702
